FAERS Safety Report 6914047-4 (Version None)
Quarter: 2010Q3

REPORT INFORMATION
  Report Type: 
  Country: None (occurrence: None)
  Receive Date: 20100809
  Receipt Date: 20100728
  Transmission Date: 20110219
  Serious: Yes (Other)
  Sender: FDA-Public Use
  Company Number: PHHY2010BE49427

PATIENT
  Sex: Female

DRUGS (5)
  1. FEMARA [Suspect]
     Indication: BREAST CANCER
     Dosage: ONCE DAILY
     Route: 048
     Dates: start: 20100301, end: 20100417
  2. OMEPRAZOLE [Concomitant]
  3. ZOK-ZID [Concomitant]
  4. ASAFLOW [Concomitant]
  5. GLUCOPHAGE [Concomitant]

REACTIONS (3)
  - ARTHRALGIA [None]
  - HEADACHE [None]
  - VISUAL ACUITY REDUCED [None]
